FAERS Safety Report 11634951 (Version 3)
Quarter: 2015Q4

REPORT INFORMATION
  Report Type: Spontaneous
  Country: DE (occurrence: DE)
  Receive Date: 20151015
  Receipt Date: 20151124
  Transmission Date: 20160304
  Serious: Yes (Life-Threatening)
  Sender: FDA-Public Use
  Company Number: ALCN2015DE006333

PATIENT
  Age: 76 Year
  Sex: Female
  Weight: 66 kg

DRUGS (9)
  1. PANTOPRAZOL [Concomitant]
     Active Substance: PANTOPRAZOLE SODIUM
     Indication: PRODUCT USED FOR UNKNOWN INDICATION
     Dosage: UNK
     Route: 065
  2. METFORMIN [Concomitant]
     Active Substance: METFORMIN HYDROCHLORIDE
     Indication: PRODUCT USED FOR UNKNOWN INDICATION
     Dosage: UNK
     Route: 065
  3. FLUORESCITE [Suspect]
     Active Substance: FLUORESCEIN SODIUM
     Indication: OPHTHALMOLOGICAL EXAMINATION
     Dosage: 1 DF, ONCE/SINGLE
     Route: 042
     Dates: start: 20151002, end: 20151002
  4. CORTISONE [Concomitant]
     Active Substance: CORTISONE\HYDROCORTISONE
     Indication: PRODUCT USED FOR UNKNOWN INDICATION
     Dosage: UNK
     Route: 065
  5. INSULIN [Concomitant]
     Active Substance: INSULIN NOS
     Indication: PRODUCT USED FOR UNKNOWN INDICATION
     Dosage: UNK
     Route: 065
  6. ASPIRIN. [Concomitant]
     Active Substance: ASPIRIN
     Indication: PRODUCT USED FOR UNKNOWN INDICATION
     Dosage: UNK
     Route: 065
  7. PREDNISOLON [Concomitant]
     Active Substance: PREDNISOLONE
     Indication: PRODUCT USED FOR UNKNOWN INDICATION
     Dosage: UNK
     Route: 065
  8. SIMVASTATIN. [Concomitant]
     Active Substance: SIMVASTATIN
     Indication: PRODUCT USED FOR UNKNOWN INDICATION
     Dosage: UNK
     Route: 065
  9. ACTRAPHANE [Concomitant]
     Active Substance: INSULIN HUMAN
     Indication: PRODUCT USED FOR UNKNOWN INDICATION
     Dosage: UNK
     Route: 065

REACTIONS (19)
  - Enuresis [Recovered/Resolved]
  - Erythema [Recovered/Resolved]
  - Drug hypersensitivity [Recovered/Resolved]
  - Loss of consciousness [Recovered/Resolved]
  - Musculoskeletal discomfort [Recovered/Resolved]
  - Feeling hot [Recovered/Resolved]
  - Cold sweat [Recovered/Resolved]
  - Diabetes mellitus inadequate control [Recovered/Resolved]
  - Dizziness [Recovered/Resolved]
  - Vertigo [Recovered/Resolved]
  - Respiratory failure [Recovered/Resolved]
  - Swelling face [Recovered/Resolved]
  - Discomfort [Recovered/Resolved]
  - Circulatory collapse [Recovered/Resolved]
  - Pulse absent [Recovered/Resolved]
  - Blood pressure immeasurable [Recovered/Resolved]
  - Dyspnoea [Recovered/Resolved]
  - Urticaria [Recovered/Resolved]
  - Nausea [Recovered/Resolved]

NARRATIVE: CASE EVENT DATE: 20151002
